FAERS Safety Report 9924679 (Version 1)
Quarter: 2014Q1

REPORT INFORMATION
  Report Type: Spontaneous
  Country: IT (occurrence: None)
  Receive Date: 20140220
  Receipt Date: 20140220
  Transmission Date: 20141002
  Serious: Yes (Other)
  Sender: FDA-Public Use
  Company Number: FK201400548

PATIENT
  Age: 76 Year
  Sex: Male

DRUGS (3)
  1. IRINOTECAN (MANUFACTURER UNKNOWN) (IRINOTECAN) (IRINOTECAN) [Suspect]
     Indication: COLON CANCER METASTATIC
     Dosage: 200 MG, CYCLICAL, INTRAVENOUS (NOT OTHERWISE SPECIFIED)?
     Route: 042
     Dates: start: 20130514, end: 20140102
  2. FLUOROURACIL [Suspect]
     Indication: COLON CANCER METASTATIC
     Dosage: 2160 MG, DAILY, INTRAVENOUS (NOT OTHERWISE SPECIFIED)?
     Route: 042
     Dates: start: 20130514, end: 20130102
  3. LEDERFOLIN (CALCIUM FOLINATE) [Concomitant]

REACTIONS (1)
  - Hypercreatininaemia [None]
